APPROVED DRUG PRODUCT: SOLIFENACIN SUCCINATE
Active Ingredient: SOLIFENACIN SUCCINATE
Strength: 5MG
Dosage Form/Route: TABLET;ORAL
Application: A206817 | Product #001 | TE Code: AB
Applicant: AUROBINDO PHARMA LTD
Approved: Dec 27, 2022 | RLD: No | RS: No | Type: RX